FAERS Safety Report 4801090-4 (Version None)
Quarter: 2005Q4

REPORT INFORMATION
  Report Type: 
  Country: None (occurrence: None)
  Receive Date: 20051017
  Receipt Date: 20050215
  Transmission Date: 20060501
  Serious: Yes (Death)
  Sender: FDA-Public Use
  Company Number: PHRM2005FR00813

PATIENT
  Age: 76 Year
  Sex: Female

DRUGS (21)
  1. SINTROM 4 [Suspect]
     Dosage: 1 MG/DAY
     Route: 048
     Dates: start: 20040904, end: 20040906
  2. SINTROM 4 [Suspect]
     Dosage: 2 MG/DAY
     Route: 048
     Dates: start: 20040906, end: 20040909
  3. VINCRISTINE + ADRIAMYCIN + DEXAMETHASONE [Suspect]
     Indication: MULTIPLE MYELOMA
     Dosage: 30 MG/DAY
     Route: 042
     Dates: start: 20040901, end: 20040901
  4. SKENAN [Suspect]
     Dosage: 5 MG/DAY
     Route: 048
     Dates: start: 20040830, end: 20040910
  5. DEXAMETHASONE [Suspect]
     Indication: MULTIPLE MYELOMA
     Dosage: 40 MG/DAY
     Route: 048
     Dates: start: 20040901, end: 20040912
  6. THALIDOMIDE [Suspect]
     Indication: MULTIPLE MYELOMA
     Dosage: 200 MG/DAY
     Route: 048
     Dates: start: 20040830, end: 20040902
  7. THALIDOMIDE [Suspect]
     Dosage: 100 MG/DAY
     Route: 048
     Dates: start: 20040903, end: 20040903
  8. SOLU-MEDROL [Suspect]
     Dosage: 20 MG/DAY
     Route: 048
     Dates: start: 20040831, end: 20050913
  9. ZOMETA [Suspect]
     Dosage: 4 MG, ONCE/SINGLE
     Route: 042
     Dates: start: 20040831, end: 20050831
  10. LEVOTHYROX [Suspect]
     Dosage: 75 A?G ON EVEN DAYS, 100 MG ON ODD DAYS
     Route: 048
     Dates: start: 20040803
  11. EFFEXOR [Suspect]
     Dosage: 37.5 MG/DAY
     Route: 048
     Dates: start: 20040831, end: 20050913
  12. TEMESTA [Suspect]
     Dosage: 0.5 MG/DAY
     Route: 048
     Dates: start: 20040830, end: 20050913
  13. DIFFU K [Suspect]
     Dosage: 1200 MG/DAY
     Route: 048
     Dates: start: 20040830
  14. SPECIAFOLDINE [Suspect]
     Dosage: 1 TAB/DAY
     Route: 048
     Dates: start: 20040803
  15. PARIET [Suspect]
     Dosage: 1 TAB/DAY
     Route: 048
     Dates: start: 20040831, end: 20050913
  16. MAGNE B6 [Suspect]
     Route: 048
     Dates: start: 20040831
  17. PRIMPERAN INJ [Suspect]
     Dosage: 30 MG/DAY
     Route: 048
     Dates: start: 20040901, end: 20040903
  18. PRIMPERAN INJ [Suspect]
     Dosage: 30 MG, PRN
     Route: 048
     Dates: start: 20040905, end: 20040906
  19. MORPHINE SULFATE [Suspect]
     Dosage: 10 MG, PRN
     Route: 048
     Dates: start: 20040905, end: 20040905
  20. DURAGESIC-100 [Suspect]
     Dosage: 25 UG, QH
     Route: 062
     Dates: start: 20040910, end: 20040910
  21. FUROSEMIDE [Suspect]
     Dosage: 100 MG/DAY
     Route: 048
     Dates: start: 20040906, end: 20040907

REACTIONS (10)
  - COMA [None]
  - GENERAL PHYSICAL HEALTH DETERIORATION [None]
  - LUNG INFECTION [None]
  - NEUTROPHIL COUNT DECREASED [None]
  - PANCYTOPENIA [None]
  - PSEUDOMONAL SEPSIS [None]
  - PYREXIA [None]
  - RED BLOOD CELL COUNT DECREASED [None]
  - THROMBOCYTOPENIA [None]
  - WHITE BLOOD CELL COUNT DECREASED [None]
